FAERS Safety Report 18195037 (Version 1)
Quarter: 2020Q3

REPORT INFORMATION
  Report Type: Spontaneous
  Country: IT (occurrence: IT)
  Receive Date: 20200825
  Receipt Date: 20200825
  Transmission Date: 20201103
  Serious: Yes (Other)
  Sender: FDA-Public Use
  Company Number: IT-MYLANLABS-2020M1072910

PATIENT
  Sex: Male

DRUGS (2)
  1. PACLITAXEL. [Suspect]
     Active Substance: PACLITAXEL
     Indication: METASTASES TO PERITONEUM
     Dosage: UNK, CYCLICAL
     Route: 065
  2. RAMUCIRUMAB [Suspect]
     Active Substance: RAMUCIRUMAB
     Indication: METASTASES TO PERITONEUM
     Dosage: UNK, CYCLICAL
     Route: 065

REACTIONS (4)
  - Malignant neoplasm progression [Unknown]
  - Neuropathy peripheral [Unknown]
  - Neutropenia [Unknown]
  - Asthenia [Unknown]
